FAERS Safety Report 8738551 (Version 3)
Quarter: 2012Q4

REPORT INFORMATION
  Report Type: 
  Country: DE (occurrence: DE)
  Receive Date: 20120823
  Receipt Date: 20121022
  Transmission Date: 20130627
  Serious: Yes (Other)
  Sender: FDA-Public Use
  Company Number: PHHY2012DE072162

PATIENT
  Age: 62 Year
  Sex: Female

DRUGS (1)
  1. ESTRADOT [Suspect]
     Indication: HORMONE REPLACEMENT THERAPY
     Dosage: 1 DF, every 3 to 4 days
     Route: 062
     Dates: start: 1997

REACTIONS (2)
  - Cardiac failure [Recovered/Resolved]
  - Renal injury [Recovered/Resolved]
